FAERS Safety Report 18563220 (Version 1)
Quarter: 2020Q4

REPORT INFORMATION
  Report Type: Report from Study
  Country: None (occurrence: US)
  Receive Date: 20201201
  Receipt Date: 20201201
  Transmission Date: 20210114
  Serious: Yes (Other)
  Sender: FDA-Public Use
  Company Number: US-ABBVIE-19K-163-2983509-00

PATIENT
  Age: 34 Year
  Sex: Male
  Weight: 70.82 kg

DRUGS (6)
  1. HUMIRA [Suspect]
     Active Substance: ADALIMUMAB
     Indication: CROHN^S DISEASE
     Route: 058
     Dates: start: 20190130
  2. BENTYL [Concomitant]
     Active Substance: DICYCLOMINE HYDROCHLORIDE
     Indication: ABDOMINAL PAIN UPPER
  3. DULOXETINE. [Concomitant]
     Active Substance: DULOXETINE
     Indication: NEURALGIA
  4. PANTOPRAZOLE [Concomitant]
     Active Substance: PANTOPRAZOLE
     Indication: GASTROOESOPHAGEAL REFLUX DISEASE
  5. BUPROPION. [Concomitant]
     Active Substance: BUPROPION
     Indication: AFFECTIVE DISORDER
  6. GABAPENTIN. [Concomitant]
     Active Substance: GABAPENTIN
     Indication: MUSCLE RELAXANT THERAPY

REACTIONS (9)
  - Fistula discharge [Unknown]
  - Erythema [Unknown]
  - Pain [Not Recovered/Not Resolved]
  - Fistula [Not Recovered/Not Resolved]
  - Abdominal pain [Unknown]
  - Injection site pruritus [Recovered/Resolved]
  - Limb mass [Not Recovered/Not Resolved]
  - Stress fracture [Not Recovered/Not Resolved]
  - Fistula inflammation [Unknown]

NARRATIVE: CASE EVENT DATE: 20191224
